FAERS Safety Report 11124330 (Version 3)
Quarter: 2015Q3

REPORT INFORMATION
  Report Type: Spontaneous
  Country: DE (occurrence: None)
  Receive Date: 20150518
  Receipt Date: 20150820
  Transmission Date: 20151125
  Serious: Yes (Other)
  Sender: FDA-Public Use
  Company Number: DE-SEPTODONT-201502821

PATIENT
  Age: 56 Year
  Sex: Male

DRUGS (3)
  1. ORAVERSE [Suspect]
     Active Substance: PHENTOLAMINE MESYLATE
     Indication: ANAESTHESIA REVERSAL
     Route: 004
     Dates: start: 20150414, end: 20150414
  2. ULTRACAIN D-S FORTE (ARTICAINE HYDROCHLORIDE [Concomitant]
  3. EPINEPHRINE HYDROCHLORIDE. [Concomitant]
     Active Substance: EPINEPHRINE HYDROCHLORIDE

REACTIONS (3)
  - Swelling face [None]
  - Rash generalised [None]
  - Drug hypersensitivity [None]

NARRATIVE: CASE EVENT DATE: 20150414
